FAERS Safety Report 10736475 (Version 1)
Quarter: 2015Q1

REPORT INFORMATION
  Report Type: Spontaneous
  Country: BR (occurrence: BR)
  Receive Date: 20150126
  Receipt Date: 20150126
  Transmission Date: 20150721
  Serious: Yes (Hospitalization, Other)
  Sender: FDA-Public Use
  Company Number: BR-ASTRAZENECA-2015SE05710

PATIENT
  Age: 51 Year
  Sex: Female

DRUGS (6)
  1. COSOPT [Concomitant]
     Active Substance: DORZOLAMIDE HYDROCHLORIDE\TIMOLOL MALEATE
     Dosage: TWO TIMES A DAY
     Dates: start: 2006
  2. HYDROCHLOROTHIAZIDE. [Suspect]
     Active Substance: HYDROCHLOROTHIAZIDE
     Route: 048
     Dates: start: 2001
  3. OMEPRAZOLE. [Suspect]
     Active Substance: OMEPRAZOLE
     Indication: GASTRITIS
     Route: 048
     Dates: start: 2010
  4. LOSARTAN POTASSIUM. [Concomitant]
     Active Substance: LOSARTAN POTASSIUM
     Indication: HYPERTENSION
     Dates: start: 2001
  5. BRAZY (NOT MATCH) [Concomitant]
     Indication: ABDOMINAL DISCOMFORT
     Dosage: 28 DAYS/EVERY 6 MONTHS
     Dates: start: 2010
  6. XALATAN [Concomitant]
     Active Substance: LATANOPROST
     Indication: GLAUCOMA
     Route: 050
     Dates: start: 2006

REACTIONS (8)
  - Abnormal faeces [Unknown]
  - Visual impairment [Unknown]
  - Intraocular pressure increased [Recovered/Resolved]
  - Haematochezia [Recovered/Resolved]
  - Drug ineffective [Unknown]
  - Glaucoma [Unknown]
  - Gastritis [Recovered/Resolved]
  - Gallbladder disorder [Recovered/Resolved]

NARRATIVE: CASE EVENT DATE: 2010
